FAERS Safety Report 7470029-8 (Version None)
Quarter: 2011Q2

REPORT INFORMATION
  Report Type: 
  Country: None (occurrence: None)
  Receive Date: 20110510
  Receipt Date: 20110510
  Transmission Date: 20111010
  Serious: Yes (Death)
  Sender: FDA-Public Use
  Company Number: AU-ROCHE-776012

PATIENT
  Sex: Female
  Weight: 51.8 kg

DRUGS (3)
  1. CALTRATE [Concomitant]
     Indication: OSTEOPOROSIS
     Route: 048
     Dates: end: 20070808
  2. OSTELIN [Concomitant]
     Indication: OSTEOPOROSIS
  3. OSELTAMIVIR [Suspect]
     Indication: INFLUENZA LIKE ILLNESS
     Route: 048
     Dates: start: 20070807, end: 20070808

REACTIONS (1)
  - INFLUENZA [None]
